FAERS Safety Report 22394038 (Version 1)
Quarter: 2023Q2

REPORT INFORMATION
  Report Type: Spontaneous
  Country: PL (occurrence: PL)
  Receive Date: 20230601
  Receipt Date: 20230601
  Transmission Date: 20230722
  Serious: Yes (Life-Threatening, Other)
  Sender: FDA-Public Use
  Company Number: PL-URPL-1-4416-2020

PATIENT
  Age: 50 Year
  Sex: Female
  Weight: 60 kg

DRUGS (4)
  1. OLANZAPINE [Suspect]
     Active Substance: OLANZAPINE
     Indication: Product used for unknown indication
     Dosage: UNK
     Route: 065
  2. MIANSERIN [Suspect]
     Active Substance: MIANSERIN
     Indication: Product used for unknown indication
     Dosage: UNK
     Route: 065
  3. TRAZODONE [Suspect]
     Active Substance: TRAZODONE HYDROCHLORIDE
     Indication: Product used for unknown indication
     Dosage: UNK (DOSAGE AND DATE OF ADMINISTRATION UNKNOWN)
     Route: 065
  4. SULPIRIDE [Suspect]
     Active Substance: SULPIRIDE
     Indication: Product used for unknown indication
     Dosage: UNK (DOSAGE AND DATE OF ADMINISTRATION UNKNOWN)
     Route: 065

REACTIONS (3)
  - Toxicity to various agents [Recovering/Resolving]
  - Suicide attempt [Recovering/Resolving]
  - Drug abuse [Unknown]
